FAERS Safety Report 8565849-2 (Version None)
Quarter: 2012Q3

REPORT INFORMATION
  Report Type: 
  Country: None (occurrence: None)
  Receive Date: 20120803
  Receipt Date: 20111023
  Transmission Date: 20120928
  Serious: No
  Sender: FDA-Public Use
  Company Number: US-ABBOTT-11P-163-0863315-00

PATIENT
  Sex: Male
  Weight: 88.53 kg

DRUGS (5)
  1. ELOCON [Concomitant]
     Indication: PSORIASIS
  2. ZYRTEC [Concomitant]
     Indication: SEASONAL ALLERGY
  3. NIASPAN [Suspect]
     Indication: BLOOD CHOLESTEROL INCREASED
     Dates: start: 20111010
  4. ASPIRIN [Concomitant]
     Indication: PRODUCT USED FOR UNKNOWN INDICATION
  5. AMITRIPTYLINE HCL [Concomitant]
     Indication: SLEEP DISORDER

REACTIONS (4)
  - SINUS DISORDER [None]
  - PYREXIA [None]
  - INFLUENZA [None]
  - FLUSHING [None]
